FAERS Safety Report 21677254 (Version 1)
Quarter: 2022Q4

REPORT INFORMATION
  Report Type: Spontaneous
  Country: US (occurrence: US)
  Receive Date: 20221203
  Receipt Date: 20221203
  Transmission Date: 20230113
  Serious: No
  Sender: FDA-Public Use
  Company Number: US-drreddys-SPO/USA/22/0157301

PATIENT
  Age: 27 Year
  Sex: Female

DRUGS (2)
  1. ACCUTANE [Suspect]
     Active Substance: ISOTRETINOIN
     Indication: Acne
     Dosage: RMA ISSUE DATE: 16/MAY/2022 02:29:11 PM, 17/JUNE/2022 10:37:55 AM, 20/JULY/2022 02:15:52 PM
  2. ACCUTANE [Suspect]
     Active Substance: ISOTRETINOIN
     Dosage: RMA ISSUE DATE: 26/AUGUST/2022 11:19:03 AM, 04/OCTOBER/2022 11:34:36 AM

REACTIONS (1)
  - Treatment noncompliance [Unknown]
